FAERS Safety Report 21843521 (Version 1)
Quarter: 2023Q1

REPORT INFORMATION
  Report Type: Spontaneous
  Country: US (occurrence: None)
  Receive Date: 20230105
  Receipt Date: 20230105
  Transmission Date: 20230418
  Serious: Yes (Hospitalization, Other)
  Sender: FDA-Public Use
  Company Number: None

PATIENT
  Sex: Male

DRUGS (1)
  1. AMMONIA INHALANTS [Suspect]
     Active Substance: AMMONIA

REACTIONS (3)
  - Seizure [None]
  - Product contamination chemical [None]
  - Poor quality product administered [None]

NARRATIVE: CASE EVENT DATE: 20230102
